FAERS Safety Report 9365943 (Version 3)
Quarter: 2014Q1

REPORT INFORMATION
  Report Type: Spontaneous
  Country: US (occurrence: US)
  Receive Date: 20130625
  Receipt Date: 20140129
  Transmission Date: 20141002
  Serious: Yes (Death)
  Sender: FDA-Public Use
  Company Number: US-PFIZER INC-2013186584

PATIENT
  Age: 69 Year
  Sex: Female

DRUGS (4)
  1. SUTENT [Suspect]
     Indication: RENAL CELL CARCINOMA
     Dosage: 50 MG, CYCLIC (QD X 21 DAYS ON - 7 DAYS OFF)
     Route: 048
     Dates: start: 20130520, end: 20131011
  2. LIPITOR [Concomitant]
     Dosage: 80 MG, 1X/DAY
  3. COREG [Concomitant]
     Dosage: 20 MG, 1X/DAY
  4. SYNTHROID [Concomitant]
     Dosage: 50 UG, 1X/DAY

REACTIONS (6)
  - Disease progression [Fatal]
  - Renal cancer metastatic [Fatal]
  - Erythema [Unknown]
  - Epistaxis [Unknown]
  - Pruritus [Recovered/Resolved]
  - Palmar erythema [Recovered/Resolved]
